FAERS Safety Report 23938965 (Version 1)
Quarter: 2024Q2

REPORT INFORMATION
  Report Type: Spontaneous
  Country: US (occurrence: US)
  Receive Date: 20240604
  Receipt Date: 20240604
  Transmission Date: 20240717
  Serious: No
  Sender: FDA-Public Use
  Company Number: US-LEX-000307

PATIENT
  Sex: Female

DRUGS (3)
  1. INPEFA [Suspect]
     Active Substance: SOTAGLIFLOZIN
     Indication: Product used for unknown indication
     Route: 048
     Dates: start: 2023
  2. ENTRESTO [Suspect]
     Active Substance: SACUBITRIL\VALSARTAN
     Indication: Product used for unknown indication
  3. METOPROLOL [Suspect]
     Active Substance: METOPROLOL
     Indication: Product used for unknown indication

REACTIONS (1)
  - Hypotension [Recovered/Resolved]
